FAERS Safety Report 8016612-2 (Version None)
Quarter: 2011Q4

REPORT INFORMATION
  Report Type: 
  Country: None (occurrence: None)
  Receive Date: 20111231
  Receipt Date: 20111222
  Transmission Date: 20120403
  Serious: Yes (Other)
  Sender: FDA-Public Use
  Company Number: CHPA2011US018566

PATIENT
  Age: 82 Year
  Sex: Female

DRUGS (3)
  1. BENEFIBER ORANGE POWDER [Suspect]
     Dosage: 1 TSP, UNK
     Route: 048
  2. BENEFIBER W/ WHEAT DEXTRIN [Suspect]
     Indication: NUTRITIONAL SUPPORT
     Dosage: 1 TSP, A DAY
     Route: 048
  3. BENEFIBER W/ WHEAT DEXTRIN [Suspect]
     Dosage: UNK, UNK
     Route: 048

REACTIONS (1)
  - NEURODEGENERATIVE DISORDER [None]
